FAERS Safety Report 23706083 (Version 1)
Quarter: 2024Q2

REPORT INFORMATION
  Report Type: Spontaneous
  Country: US (occurrence: US)
  Receive Date: 20240404
  Receipt Date: 20240404
  Transmission Date: 20240715
  Serious: Yes (Hospitalization, Other)
  Sender: FDA-Public Use
  Company Number: US-GTI-000214

PATIENT
  Sex: Male

DRUGS (28)
  1. PREDNISONE [Suspect]
     Active Substance: PREDNISONE
     Indication: Cutaneous vasculitis
     Route: 065
  2. PREDNISONE [Suspect]
     Active Substance: PREDNISONE
     Indication: Myopathy
     Route: 065
  3. PREDNISONE [Suspect]
     Active Substance: PREDNISONE
     Indication: Interstitial lung disease
     Route: 065
  4. PREDNISONE [Suspect]
     Active Substance: PREDNISONE
     Indication: Cutaneous vasculitis
     Route: 065
  5. PREDNISONE [Suspect]
     Active Substance: PREDNISONE
     Indication: Myopathy
     Route: 065
  6. PREDNISONE [Suspect]
     Active Substance: PREDNISONE
     Indication: Interstitial lung disease
     Route: 065
  7. PREDNISONE [Suspect]
     Active Substance: PREDNISONE
     Indication: Cutaneous vasculitis
     Route: 065
  8. PREDNISONE [Suspect]
     Active Substance: PREDNISONE
     Indication: Myopathy
     Route: 065
  9. PREDNISONE [Suspect]
     Active Substance: PREDNISONE
     Indication: Interstitial lung disease
     Route: 065
  10. TACROLIMUS [Suspect]
     Active Substance: TACROLIMUS
     Indication: Cutaneous vasculitis
     Route: 061
  11. TACROLIMUS [Suspect]
     Active Substance: TACROLIMUS
     Indication: Myopathy
     Route: 061
  12. TACROLIMUS [Suspect]
     Active Substance: TACROLIMUS
     Indication: Interstitial lung disease
     Route: 061
  13. MUPIROCIN [Suspect]
     Active Substance: MUPIROCIN
     Indication: Cutaneous vasculitis
     Route: 061
  14. MUPIROCIN [Suspect]
     Active Substance: MUPIROCIN
     Indication: Myopathy
     Route: 061
  15. MUPIROCIN [Suspect]
     Active Substance: MUPIROCIN
     Indication: Interstitial lung disease
     Route: 061
  16. METHYLPREDNISOLONE [Suspect]
     Active Substance: METHYLPREDNISOLONE
     Indication: Immunosuppression
     Route: 042
  17. METHYLPREDNISOLONE [Suspect]
     Active Substance: METHYLPREDNISOLONE
     Indication: Cutaneous vasculitis
     Route: 042
  18. METHYLPREDNISOLONE [Suspect]
     Active Substance: METHYLPREDNISOLONE
     Indication: Myopathy
     Route: 042
  19. METHYLPREDNISOLONE [Suspect]
     Active Substance: METHYLPREDNISOLONE
     Indication: Interstitial lung disease
     Route: 042
  20. MYCOPHENOLATE MOFETIL [Suspect]
     Active Substance: MYCOPHENOLATE MOFETIL
     Indication: Cutaneous vasculitis
     Route: 048
  21. MYCOPHENOLATE MOFETIL [Suspect]
     Active Substance: MYCOPHENOLATE MOFETIL
     Indication: Myopathy
     Route: 048
  22. MYCOPHENOLATE MOFETIL [Suspect]
     Active Substance: MYCOPHENOLATE MOFETIL
     Indication: Interstitial lung disease
     Route: 048
  23. MYCOPHENOLATE MOFETIL [Suspect]
     Active Substance: MYCOPHENOLATE MOFETIL
     Indication: Cutaneous vasculitis
     Route: 048
  24. MYCOPHENOLATE MOFETIL [Suspect]
     Active Substance: MYCOPHENOLATE MOFETIL
     Indication: Myopathy
     Route: 048
  25. MYCOPHENOLATE MOFETIL [Suspect]
     Active Substance: MYCOPHENOLATE MOFETIL
     Indication: Interstitial lung disease
     Route: 048
  26. TACROLIMUS [Suspect]
     Active Substance: TACROLIMUS
     Indication: Cutaneous vasculitis
     Route: 048
  27. TACROLIMUS [Suspect]
     Active Substance: TACROLIMUS
     Indication: Myopathy
     Route: 048
  28. TACROLIMUS [Suspect]
     Active Substance: TACROLIMUS
     Indication: Interstitial lung disease
     Route: 048

REACTIONS (13)
  - Disease progression [Recovering/Resolving]
  - Interstitial lung disease [Recovering/Resolving]
  - Myopathy [Recovered/Resolved]
  - Cutaneous vasculitis [Recovered/Resolved]
  - Normochromic normocytic anaemia [Unknown]
  - Hypoalbuminaemia [Unknown]
  - Organising pneumonia [Unknown]
  - Diverticulitis [Unknown]
  - Skin necrosis [Unknown]
  - Substance-induced psychotic disorder [Recovered/Resolved]
  - Septic shock [Recovered/Resolved]
  - Drug ineffective [Unknown]
  - Febrile neutropenia [Recovered/Resolved]
